FAERS Safety Report 5428662-0 (Version None)
Quarter: 2007Q3

REPORT INFORMATION
  Report Type: 
  Country: None (occurrence: None)
  Receive Date: 20070828
  Receipt Date: 20070817
  Transmission Date: 20080115
  Serious: Yes (Hospitalization, Other)
  Sender: FDA-Public Use
  Company Number: US-SHR-US-2007-030907

PATIENT
  Age: 52 Year
  Sex: Female

DRUGS (1)
  1. BETASERON [Suspect]
     Indication: RELAPSING-REMITTING MULTIPLE SCLEROSIS
     Dosage: 8 MIU, EVERY 2D AT BEDTIME
     Route: 058
     Dates: start: 19990726

REACTIONS (4)
  - BLINDNESS UNILATERAL [None]
  - ENAMEL ANOMALY [None]
  - INJECTION SITE REACTION [None]
  - MULTIPLE SCLEROSIS [None]
